FAERS Safety Report 8922117 (Version 1)
Quarter: 2012Q4

REPORT INFORMATION
  Report Type: 
  Country: DE (occurrence: DE)
  Receive Date: 20121123
  Receipt Date: 20121123
  Transmission Date: 20130627
  Serious: Yes (Other)
  Sender: FDA-Public Use
  Company Number: PHHY2012DE105858

PATIENT
  Sex: Female

DRUGS (2)
  1. GILENYA [Suspect]
     Indication: MULTIPLE SCLEROSIS
     Dosage: 0.5 mg, QD
     Route: 048
     Dates: start: 2011, end: 201208
  2. PANTOZOL [Suspect]

REACTIONS (3)
  - Electrocardiogram QT prolonged [Unknown]
  - Bundle branch block right [Unknown]
  - Tachycardia [Unknown]
